FAERS Safety Report 17307564 (Version 2)
Quarter: 2020Q1

REPORT INFORMATION
  Report Type: Report from Study
  Country: GB (occurrence: GB)
  Receive Date: 20200123
  Receipt Date: 20200317
  Transmission Date: 20200409
  Serious: Yes (Death)
  Sender: FDA-Public Use
  Company Number: GB-ROCHE-2520095

PATIENT
  Age: 78 Year
  Sex: Male
  Weight: 81 kg

DRUGS (10)
  1. RITUXIMAB. [Suspect]
     Active Substance: RITUXIMAB
     Indication: B-CELL LYMPHOMA
     Dosage: DATE OF THE MOST RECENT DOSE OF RITUXIMAB PRIOR TO SAE ONSET 13/AUG/2019
     Route: 041
     Dates: start: 20190510
  2. OXALIPLATIN. [Suspect]
     Active Substance: OXALIPLATIN
     Indication: B-CELL LYMPHOMA
     Dosage: DATE OF THE MOST RECENT DOSE OF OXALIPLATIN PRIOR TO SAE ONSET 13/AUG/2019 (200 MG)
     Route: 041
     Dates: start: 20190510
  3. BISOPROLOL [Concomitant]
     Active Substance: BISOPROLOL
     Route: 065
     Dates: start: 20190527
  4. ADCAL D3 [Concomitant]
     Active Substance: CALCIUM CARBONATE\CHOLECALCIFEROL
     Route: 048
  5. GEMCITABINE. [Suspect]
     Active Substance: GEMCITABINE
     Indication: B-CELL LYMPHOMA
     Dosage: DATE OF THE MOST RECENT DOSE OF GEMCITABINE PRIOR TO SAE ONSET 13/AUG/2019 (1862 MG)
     Route: 041
     Dates: start: 20190510
  6. G-CSF [Suspect]
     Active Substance: GRANULOCYTE COLONY-STIMULATING FACTOR NOS
     Indication: B-CELL LYMPHOMA
     Dosage: DATE OF THE MOST RECENT DOSE OF G-CSF PRIOR TO SAE ONSET 13/AUG/2019
     Route: 065
     Dates: start: 20190510
  7. RAMIPRIL. [Concomitant]
     Active Substance: RAMIPRIL
     Route: 065
     Dates: start: 20190617
  8. ATEZOLIZUMAB. [Suspect]
     Active Substance: ATEZOLIZUMAB
     Indication: B-CELL LYMPHOMA
     Dosage: DATE OF THE MOST RECENT DOSE OF ATEZOLIZUMAB PRIOR TO SAE ONSET 13/AUG/2019
     Route: 042
     Dates: start: 20190528
  9. OMEPRAZOLE. [Concomitant]
     Active Substance: OMEPRAZOLE
     Route: 048
     Dates: start: 20190212
  10. SIMVASTATIN. [Concomitant]
     Active Substance: SIMVASTATIN
     Route: 065
     Dates: start: 20190110

REACTIONS (2)
  - Pneumonitis [Fatal]
  - Lung consolidation [Fatal]

NARRATIVE: CASE EVENT DATE: 20191207
